FAERS Safety Report 7313086-1 (Version None)
Quarter: 2011Q1

REPORT INFORMATION
  Report Type: 
  Country: None (occurrence: None)
  Receive Date: 20110225
  Receipt Date: 20110212
  Transmission Date: 20110831
  Serious: No
  Sender: FDA-Public Use
  Company Number: US-BIOGENIDEC-2011BI006149

PATIENT
  Age: 59 Year
  Sex: Female

DRUGS (2)
  1. TYSABRI [Suspect]
     Indication: MULTIPLE SCLEROSIS
     Route: 042
     Dates: start: 20101117
  2. AVONEX [Concomitant]
     Indication: MULTIPLE SCLEROSIS
     Route: 030
     Dates: start: 20031021

REACTIONS (6)
  - CHEST PAIN [None]
  - PROCEDURAL COMPLICATION [None]
  - NECK PAIN [None]
  - PALPITATIONS [None]
  - DYSPNOEA [None]
  - PAIN IN EXTREMITY [None]
